FAERS Safety Report 11648114 (Version 2)
Quarter: 2015Q4

REPORT INFORMATION
  Report Type: Report from Study
  Country: PL (occurrence: PL)
  Receive Date: 20151021
  Receipt Date: 20151204
  Transmission Date: 20160304
  Serious: Yes (Hospitalization, Other)
  Sender: FDA-Public Use
  Company Number: PL-BIOGENIDEC-2013BI094192

PATIENT
  Age: 39 Year
  Sex: Female
  Weight: 56 kg

DRUGS (2)
  1. BIIB017 [Suspect]
     Active Substance: PEGINTERFERON BETA-1A
     Indication: MULTIPLE SCLEROSIS
     Route: 058
     Dates: start: 20111014
  2. ASENTRA [Concomitant]
     Indication: DEPRESSION
     Route: 048
     Dates: start: 2011

REACTIONS (2)
  - Thoracic vertebral fracture [Recovered/Resolved]
  - Road traffic accident [Recovered/Resolved]

NARRATIVE: CASE EVENT DATE: 20130924
